FAERS Safety Report 15383635 (Version 1)
Quarter: 2018Q3

REPORT INFORMATION
  Report Type: Report from Study
  Country: US (occurrence: US)
  Receive Date: 20180913
  Receipt Date: 20180913
  Transmission Date: 20181010
  Serious: Yes (Death, Life-Threatening, Hospitalization, Other)
  Sender: FDA-Public Use
  Company Number: US-BRISTOL-MYERS SQUIBB COMPANY-BMS-2018-078581

PATIENT
  Age: 71 Year
  Sex: Male

DRUGS (2)
  1. BMS?986205?04 [Suspect]
     Active Substance: INVESTIGATIONAL PRODUCT
     Indication: RENAL CELL CARCINOMA
     Dosage: 100 MG, DAILY
     Route: 048
     Dates: start: 20180518, end: 20180619
  2. NIVOLUMAB [Suspect]
     Active Substance: NIVOLUMAB
     Indication: RENAL CELL CARCINOMA
     Dosage: 480 MG, Q4WK
     Route: 042
     Dates: start: 20180518, end: 20180615

REACTIONS (2)
  - Malignant neoplasm progression [Fatal]
  - Pneumonitis [Unknown]

NARRATIVE: CASE EVENT DATE: 20180819
